FAERS Safety Report 20430536 (Version 2)
Quarter: 2022Q3

REPORT INFORMATION
  Report Type: Report from Study
  Country: FR (occurrence: FR)
  Receive Date: 20220204
  Receipt Date: 20220812
  Transmission Date: 20221026
  Serious: Yes (Hospitalization, Other)
  Sender: FDA-Public Use
  Company Number: FR-SERVIER-S20011010

PATIENT

DRUGS (4)
  1. PEGASPARGASE [Suspect]
     Active Substance: PEGASPARGASE
     Indication: Acute lymphocytic leukaemia
     Dosage: 975 IU, ON D12, D26
     Route: 042
     Dates: start: 20200810, end: 20200824
  2. VINCRISTINE [Suspect]
     Active Substance: VINCRISTINE
     Indication: Acute lymphocytic leukaemia
     Dosage: 1.1 MG ON D8, D15, D22, D29
     Route: 042
     Dates: start: 20200806, end: 20200827
  3. DEXAMETHASONE [Suspect]
     Active Substance: DEXAMETHASONE
     Indication: Acute lymphocytic leukaemia
     Dosage: 5 MG ON D8 TO D28
     Route: 048
     Dates: start: 20200806, end: 20200826
  4. METHOTREXATE [Suspect]
     Active Substance: METHOTREXATE
     Indication: Acute lymphocytic leukaemia
     Dosage: 12 MG ON D13, D24
     Route: 037
     Dates: start: 20200811, end: 20200821

REACTIONS (4)
  - Renal failure [Recovering/Resolving]
  - Pleural effusion [Recovering/Resolving]
  - Cerebral aspergillosis [Recovering/Resolving]
  - Hyperbilirubinaemia [Recovered/Resolved]

NARRATIVE: CASE EVENT DATE: 20200827
